FAERS Safety Report 7582434-X (Version None)
Quarter: 2011Q2

REPORT INFORMATION
  Report Type: 
  Country: None (occurrence: None)
  Receive Date: 20110630
  Receipt Date: 20110623
  Transmission Date: 20111010
  Serious: Yes (Other)
  Sender: FDA-Public Use
  Company Number: US-PFIZER INC-2011140106

PATIENT
  Age: 71 Year
  Sex: Male

DRUGS (3)
  1. AMOXICILLIN [Interacting]
     Indication: SURGERY
     Dosage: UNK
     Route: 048
     Dates: start: 20110401
  2. LIPITOR [Suspect]
     Route: 048
  3. SIMVASTATIN [Interacting]
     Dosage: UNK
     Route: 048
     Dates: end: 20110101

REACTIONS (2)
  - MUSCLE INJURY [None]
  - DRUG INTERACTION [None]
